FAERS Safety Report 21187803 (Version 2)
Quarter: 2022Q3

REPORT INFORMATION
  Report Type: Spontaneous
  Country: US (occurrence: None)
  Receive Date: 20220809
  Receipt Date: 20220816
  Transmission Date: 20221027
  Serious: No
  Sender: FDA-Public Use
  Company Number: US-ROCHE-3026419

PATIENT
  Sex: Female
  Weight: 127.12 kg

DRUGS (4)
  1. EVRYSDI [Suspect]
     Active Substance: RISDIPLAM
     Indication: Product used for unknown indication
     Dosage: EVRYSDI POWDER FOR ORAL SOLUTION 0.75MG/1 ML, GLASS BOTTLE 80ML US
     Route: 048
  2. EVRYSDI [Suspect]
     Active Substance: RISDIPLAM
  3. EVRYSDI [Suspect]
     Active Substance: RISDIPLAM
  4. EVRYSDI [Suspect]
     Active Substance: RISDIPLAM

REACTIONS (4)
  - Occupational exposure to product [Unknown]
  - Product container issue [Unknown]
  - Product container seal issue [Unknown]
  - No adverse event [Unknown]
